FAERS Safety Report 14176700 (Version 2)
Quarter: 2018Q1

REPORT INFORMATION
  Report Type: Report from Study
  Country: IT (occurrence: IT)
  Receive Date: 20171110
  Receipt Date: 20180331
  Transmission Date: 20180508
  Serious: Yes (Other)
  Sender: FDA-Public Use
  Company Number: IT-ROCHE-2016847

PATIENT
  Sex: Female

DRUGS (1)
  1. ATEZOLIZUMAB. [Suspect]
     Active Substance: ATEZOLIZUMAB
     Indication: TRANSITIONAL CELL CARCINOMA
     Dosage: 4 CYCLES
     Route: 065
     Dates: end: 20171004

REACTIONS (2)
  - Disease progression [Unknown]
  - Drug ineffective [Unknown]
